FAERS Safety Report 13525802 (Version 1)
Quarter: 2017Q2

REPORT INFORMATION
  Report Type: Spontaneous
  Country: DE (occurrence: DE)
  Receive Date: 20170509
  Receipt Date: 20170509
  Transmission Date: 20170830
  Serious: Yes (Hospitalization)
  Sender: FDA-Public Use
  Company Number: DE-AMGEN-DEUSP2017070027

PATIENT
  Age: 54 Year
  Sex: Female

DRUGS (4)
  1. ADALIMUMAB [Concomitant]
     Active Substance: ADALIMUMAB
  2. CORTISON [Concomitant]
     Active Substance: CORTISONE ACETATE
  3. ENBREL [Suspect]
     Active Substance: ETANERCEPT
     Indication: RHEUMATOID ARTHRITIS
     Dosage: 50 MG, 1X/WEEK
     Route: 065
     Dates: start: 20160405
  4. LEFLUNOMID [Concomitant]
     Active Substance: LEFLUNOMIDE

REACTIONS (2)
  - Upper limb fracture [Unknown]
  - Accident at home [Unknown]

NARRATIVE: CASE EVENT DATE: 20170405
